FAERS Safety Report 7518638-1 (Version None)
Quarter: 2011Q2

REPORT INFORMATION
  Report Type: 
  Country: None (occurrence: None)
  Receive Date: 20110601
  Receipt Date: 20110601
  Transmission Date: 20111010
  Serious: Yes (Hospitalization, Other)
  Sender: FDA-Public Use
  Company Number: None

PATIENT
  Age: 47 Year
  Sex: Male
  Weight: 81.6475 kg

DRUGS (2)
  1. KLONOPIN [Suspect]
     Indication: ANXIETY
     Dosage: 1 PILL 4 OR 5 TIMES A DAY
     Dates: start: 20040915, end: 20110526
  2. KLONOPIN [Suspect]
     Indication: PANIC ATTACK
     Dosage: 1 PILL 4 OR 5 TIMES A DAY
     Dates: start: 20040915, end: 20110526

REACTIONS (5)
  - DRUG INEFFECTIVE [None]
  - PANIC ATTACK [None]
  - DIVERTICULITIS [None]
  - FEELING ABNORMAL [None]
  - ANXIETY [None]
